FAERS Safety Report 16720375 (Version 1)
Quarter: 2019Q3

REPORT INFORMATION
  Report Type: Spontaneous
  Country: US (occurrence: US)
  Receive Date: 20190820
  Receipt Date: 20190820
  Transmission Date: 20191005
  Serious: Yes (Other)
  Sender: FDA-Public Use
  Company Number: US-PFIZER INC-2019354055

PATIENT
  Age: 58 Year
  Sex: Female
  Weight: 82 kg

DRUGS (1)
  1. XELJANZ [Suspect]
     Active Substance: TOFACITINIB CITRATE
     Indication: PSORIATIC ARTHROPATHY
     Dosage: 5 MG, 2X/DAY
     Route: 048
     Dates: start: 20190604, end: 2019

REACTIONS (4)
  - Oral mucosal blistering [Unknown]
  - Oropharyngeal blistering [Unknown]
  - Throat irritation [Unknown]
  - Stomatitis [Unknown]
